FAERS Safety Report 14033409 (Version 2)
Quarter: 2024Q1

REPORT INFORMATION
  Report Type: Spontaneous
  Country: US (occurrence: US)
  Receive Date: 20171002
  Receipt Date: 20240308
  Transmission Date: 20240410
  Serious: No
  Sender: FDA-Public Use
  Company Number: US-JAZZ-2017-US-010734

PATIENT
  Age: 25 Year
  Sex: Female

DRUGS (2)
  1. XYREM [Suspect]
     Active Substance: SODIUM OXYBATE
     Indication: Product used for unknown indication
     Route: 048
  2. ALCOHOL [Suspect]
     Active Substance: ALCOHOL
     Indication: Product used for unknown indication
     Dosage: UNK

REACTIONS (6)
  - Vertigo [Unknown]
  - Hyperhidrosis [Unknown]
  - Dizziness [Unknown]
  - Somnolence [Unknown]
  - Lethargy [Unknown]
  - Intentional product misuse [Unknown]
